FAERS Safety Report 12785570 (Version 2)
Quarter: 2016Q4

REPORT INFORMATION
  Report Type: Spontaneous
  Country: JP (occurrence: JP)
  Receive Date: 20160927
  Receipt Date: 20161222
  Transmission Date: 20170207
  Serious: Yes (Death, Hospitalization, Other)
  Sender: FDA-Public Use
  Company Number: JP-ELI_LILLY_AND_COMPANY-JP201609008971

PATIENT
  Age: 67 Year
  Sex: Male
  Weight: 46 kg

DRUGS (4)
  1. PACLITAXEL. [Suspect]
     Active Substance: PACLITAXEL
     Indication: GASTRIC CANCER STAGE IV
     Dosage: 120 MG, D1, 8, 15 Q28D
     Route: 042
     Dates: start: 20151214, end: 20151228
  2. CYRAMZA [Suspect]
     Active Substance: RAMUCIRUMAB
     Indication: GASTRIC CANCER STAGE IV
     Dosage: 360 MG, D1, 15 Q28D
     Route: 042
     Dates: start: 20151214, end: 20151228
  3. INTRALIPOS [Concomitant]
     Active Substance: SOYBEAN OIL
     Indication: NUTRITIONAL SUPPLEMENTATION
     Dosage: 1 DF, QD
     Route: 042
     Dates: start: 20151209, end: 20160102
  4. ELNEOPA NO.2 [Concomitant]
     Active Substance: AMINO ACIDS\CARBOHYDRATES\ELECTROLYTES NOS\VITAMINS
     Indication: NUTRITIONAL SUPPLEMENTATION
     Dosage: 1 DF, QD
     Route: 042
     Dates: start: 20151217, end: 20160102

REACTIONS (8)
  - Febrile neutropenia [Fatal]
  - Dehydration [Unknown]
  - Acute kidney injury [Unknown]
  - Coagulopathy [Unknown]
  - Melaena [Unknown]
  - Sepsis [Fatal]
  - Pneumonia [Unknown]
  - Diarrhoea [Unknown]

NARRATIVE: CASE EVENT DATE: 20151229
